FAERS Safety Report 8358238-7 (Version None)
Quarter: 2012Q2

REPORT INFORMATION
  Report Type: 
  Country: None (occurrence: None)
  Receive Date: 20120514
  Receipt Date: 20120509
  Transmission Date: 20120825
  Serious: Yes (Hospitalization)
  Sender: FDA-Public Use
  Company Number: IE-GLAXOSMITHKLINE-B0800306A

PATIENT
  Sex: Female
  Weight: 84 kg

DRUGS (14)
  1. NEULASTA [Concomitant]
     Indication: CHEMOTHERAPY
     Route: 058
     Dates: start: 20120328
  2. DEXAMETHASONE [Concomitant]
     Indication: CHEMOTHERAPY
     Route: 048
     Dates: start: 20120326
  3. LAPATINIB [Suspect]
     Indication: BREAST CANCER
     Dosage: 1000MG PER DAY
     Route: 048
     Dates: start: 20120327
  4. CARBOPLATIN [Suspect]
     Indication: BREAST CANCER
     Dosage: 820MG CYCLIC
     Route: 042
     Dates: start: 20120327
  5. DIOVAN HCT [Concomitant]
     Indication: HYPERTENSION
     Route: 048
     Dates: start: 20080101
  6. TRAMADOL HYDROCHLORIDE [Concomitant]
     Indication: PAIN
     Dosage: 150MG AS REQUIRED
     Route: 048
     Dates: start: 20120327
  7. VALOID [Concomitant]
     Indication: NAUSEA
     Route: 048
     Dates: start: 20120329
  8. DOCETAXEL [Suspect]
     Indication: BREAST CANCER
     Dosage: 145MG CYCLIC
     Route: 042
     Dates: start: 20120327
  9. ISTIN [Concomitant]
     Indication: HYPERTENSION
     Route: 048
     Dates: start: 20080101
  10. PRILOSEC [Concomitant]
     Indication: DYSPEPSIA
     Route: 048
     Dates: start: 20110101
  11. LOMOTIL [Concomitant]
     Indication: DIARRHOEA
     Route: 048
     Dates: start: 20120503
  12. ZOFRAN [Concomitant]
     Indication: NAUSEA
     Dates: start: 20120417
  13. HERCEPTIN [Suspect]
     Indication: BREAST CANCER
     Dosage: 546MG EVERY 3 WEEKS
     Route: 042
     Dates: start: 20120327
  14. MOTILIUM [Concomitant]
     Indication: NAUSEA
     Route: 048
     Dates: start: 20120327

REACTIONS (2)
  - RENAL FAILURE ACUTE [None]
  - DEHYDRATION [None]
